FAERS Safety Report 9188558 (Version 2)
Quarter: 2013Q3

REPORT INFORMATION
  Report Type: Spontaneous
  Country: JP (occurrence: JP)
  Receive Date: 20130325
  Receipt Date: 20130920
  Transmission Date: 20140515
  Serious: Yes (Life-Threatening)
  Sender: FDA-Public Use
  Company Number: JP-ASTRAZENECA-2013SE17870

PATIENT
  Age: 65 Year
  Sex: Male

DRUGS (2)
  1. CARBOCAIN [Suspect]
     Dosage: DOSE UNKNOWN
     Route: 065
     Dates: start: 20130315
  2. BRIDION [Concomitant]
     Dosage: DOSE UNKNOWN
     Route: 065
     Dates: start: 20130315

REACTIONS (2)
  - Shock [Unknown]
  - Hypersensitivity [Unknown]
